FAERS Safety Report 4422757-6 (Version None)
Quarter: 2004Q3

REPORT INFORMATION
  Report Type: 
  Country: None (occurrence: None)
  Receive Date: 20040713
  Receipt Date: 20030820
  Transmission Date: 20050211
  Serious: No
  Sender: FDA-Public Use
  Company Number: PHEH2003US07540

PATIENT
  Age: 73 Year
  Sex: Male

DRUGS (2)
  1. ELIDEL [Suspect]
     Indication: DERMATITIS
     Dosage: BID, TOPICAL
     Route: 061
     Dates: start: 20030101, end: 20030817
  2. FOSAMAX [Concomitant]

REACTIONS (5)
  - AGEUSIA [None]
  - ANOSMIA [None]
  - COUGH [None]
  - NASOPHARYNGITIS [None]
  - RETCHING [None]
